FAERS Safety Report 18157455 (Version 1)
Quarter: 2020Q3

REPORT INFORMATION
  Report Type: Spontaneous
  Country: US (occurrence: US)
  Receive Date: 20200817
  Receipt Date: 20200817
  Transmission Date: 20201103
  Serious: Yes (Other)
  Sender: FDA-Public Use
  Company Number: US-SPECGX-T202000756

PATIENT
  Sex: Female
  Weight: 58 kg

DRUGS (2)
  1. LEVOTHYROXINE. [Concomitant]
     Active Substance: LEVOTHYROXINE
     Indication: HYPOTHYROIDISM
     Dosage: UNK
     Route: 065
  2. ROXICODONE [Suspect]
     Active Substance: OXYCODONE HYDROCHLORIDE
     Indication: PAIN
     Dosage: 15 MILLIGRAM, QID (FOUR TIMES A DAY)
     Route: 048
     Dates: end: 20180308

REACTIONS (2)
  - Exposure during pregnancy [Unknown]
  - Drug dependence [Recovered/Resolved]
